FAERS Safety Report 10872277 (Version 1)
Quarter: 2015Q1

REPORT INFORMATION
  Report Type: Spontaneous
  Country: US (occurrence: None)
  Receive Date: 20150220
  Receipt Date: 20150220
  Transmission Date: 20150721
  Serious: No
  Sender: FDA-Public Use
  Company Number: None

PATIENT
  Age: 61 Year
  Sex: Male

DRUGS (9)
  1. AMPYRA [Suspect]
     Active Substance: DALFAMPRIDINE
     Indication: MULTIPLE SCLEROSIS
     Route: 048
     Dates: start: 201104, end: 201412
  2. MOTRIN [Concomitant]
     Active Substance: IBUPROFEN
  3. AMPYRA [Concomitant]
     Active Substance: DALFAMPRIDINE
  4. RITUXAN [Concomitant]
     Active Substance: RITUXIMAB
  5. NEURONTIN [Concomitant]
     Active Substance: GABAPENTIN
  6. ZANAFLEX [Concomitant]
     Active Substance: TIZANIDINE HYDROCHLORIDE
  7. SENNOSIDES-DOCUSATE SODIUM [Concomitant]
     Active Substance: DOCUSATE SODIUM\SENNOSIDES
  8. MORPHINE [Concomitant]
     Active Substance: MORPHINE
  9. NORCO [Concomitant]
     Active Substance: ACETAMINOPHEN\HYDROCODONE BITARTRATE

REACTIONS (3)
  - Arthralgia [None]
  - Drug ineffective [None]
  - Back pain [None]

NARRATIVE: CASE EVENT DATE: 20150107
